FAERS Safety Report 5373466-0 (Version None)
Quarter: 2007Q2

REPORT INFORMATION
  Report Type: 
  Country: None (occurrence: None)
  Receive Date: 20070628
  Receipt Date: 20070618
  Transmission Date: 20071010
  Serious: Yes (Hospitalization, Other)
  Sender: FDA-Public Use
  Company Number: HQWYE657518JUN07

PATIENT
  Sex: Female

DRUGS (11)
  1. SIROLIMUS [Suspect]
     Indication: PROPHYLAXIS AGAINST TRANSPLANT REJECTION
     Route: 048
     Dates: start: 20070507, end: 20070515
  2. SIROLIMUS [Suspect]
     Route: 048
     Dates: start: 20070516, end: 20070522
  3. SIROLIMUS [Suspect]
     Route: 048
     Dates: start: 20070523, end: 20070605
  4. VALCYTE [Suspect]
     Route: 065
     Dates: start: 20070507, end: 20070605
  5. OMEPRAZOLE [Concomitant]
     Dosage: UNKNOWN
     Route: 065
     Dates: start: 20070507
  6. ACETYLSALICYLIC ACID SRT [Concomitant]
     Dosage: UNKNOWN
     Route: 065
     Dates: start: 20070507
  7. TYLENOL [Concomitant]
     Dosage: UNKNOWN
     Route: 065
  8. SEPTRA [Concomitant]
     Dosage: UNKNOWN
     Route: 065
     Dates: start: 20070507
  9. MYCOPHENOLATE MOFETIL [Suspect]
     Indication: PROPHYLAXIS AGAINST TRANSPLANT REJECTION
     Route: 048
     Dates: start: 20070507, end: 20070601
  10. MYCOPHENOLATE MOFETIL [Suspect]
     Route: 048
     Dates: start: 20070602
  11. PREDNISONE TAB [Suspect]
     Indication: PROPHYLAXIS AGAINST TRANSPLANT REJECTION
     Route: 048
     Dates: start: 20070507

REACTIONS (4)
  - ANAEMIA [None]
  - LIVER FUNCTION TEST ABNORMAL [None]
  - NEUTROPENIA [None]
  - VAGINAL HAEMORRHAGE [None]
